FAERS Safety Report 18014299 (Version 3)
Quarter: 2020Q3

REPORT INFORMATION
  Report Type: Report from Study
  Country: GB (occurrence: GB)
  Receive Date: 20200713
  Receipt Date: 20200922
  Transmission Date: 20201103
  Serious: Yes (Death, Hospitalization)
  Sender: FDA-Public Use
  Company Number: PHHY2019GB208940

PATIENT
  Age: 59 Year
  Sex: Male

DRUGS (2)
  1. LUTATHERA [Suspect]
     Active Substance: LUTETIUM OXODOTREOTIDE LU-177
     Dosage: 200 MCI, TOTAL
     Route: 042
     Dates: start: 20160607, end: 20160607
  2. LUTATHERA [Suspect]
     Active Substance: LUTETIUM OXODOTREOTIDE LU-177
     Indication: PANCREATIC NEUROENDOCRINE TUMOUR METASTATIC
     Dosage: 139 MCI, TOTAL
     Route: 042
     Dates: start: 20160216, end: 20160216

REACTIONS (7)
  - Pyrexia [Recovered/Resolved]
  - Hepatic encephalopathy [Fatal]
  - Abdominal pain [Recovered/Resolved]
  - Biliary sepsis [Recovered/Resolved]
  - Hypokalaemia [Recovered/Resolved]
  - Diarrhoea [Recovered/Resolved]
  - Vomiting [Recovered/Resolved]

NARRATIVE: CASE EVENT DATE: 20160404
